FAERS Safety Report 11687351 (Version 3)
Quarter: 2015Q4

REPORT INFORMATION
  Report Type: Spontaneous
  Country: FR (occurrence: FR)
  Receive Date: 20151030
  Receipt Date: 20151204
  Transmission Date: 20160304
  Serious: Yes (Life-Threatening, Hospitalization)
  Sender: FDA-Public Use
  Company Number: FR-AMGEN-FRASP2015103493

PATIENT
  Age: 49 Year
  Sex: Male
  Weight: 90 kg

DRUGS (7)
  1. NEULASTA [Suspect]
     Active Substance: PEGFILGRASTIM
     Dosage: 6 MG, 1 IN 1 SINGLE DOSE
     Route: 058
     Dates: start: 20150927, end: 20150927
  2. ETOPOSIDE. [Concomitant]
     Active Substance: ETOPOSIDE
     Indication: TESTIS CANCER
     Dosage: UNK
     Route: 042
     Dates: start: 20150921, end: 20150925
  3. NEULASTA [Suspect]
     Active Substance: PEGFILGRASTIM
     Indication: COLONY STIMULATING FACTOR PROPHYLAXIS
     Dosage: UNK
     Route: 065
     Dates: start: 20150926, end: 20150926
  4. SOLUPRED                           /00016201/ [Concomitant]
     Active Substance: PREDNISOLONE
     Indication: VOMITING
     Dosage: 440 MG, QD
     Route: 048
     Dates: start: 20150926, end: 20150929
  5. MOTILIUM [Concomitant]
     Active Substance: DOMPERIDONE
     Indication: VOMITING
     Dosage: UNK UNK, TID 2.2.2
     Route: 048
     Dates: start: 20150926, end: 20150929
  6. BLEOMYCIN [Concomitant]
     Active Substance: BLEOMYCIN SULFATE
     Indication: TESTIS CANCER
     Dosage: UNK
     Route: 042
     Dates: start: 20150921, end: 20150925
  7. CISPLATIN. [Concomitant]
     Active Substance: CISPLATIN
     Indication: TESTIS CANCER
     Dosage: UNK
     Route: 042
     Dates: start: 20150921, end: 20150925

REACTIONS (4)
  - Leukocytosis [Recovering/Resolving]
  - Splenic haematoma [Not Recovered/Not Resolved]
  - Splenic rupture [Recovering/Resolving]
  - Splenic infarction [Not Recovered/Not Resolved]

NARRATIVE: CASE EVENT DATE: 201509
